FAERS Safety Report 10047762 (Version 1)
Quarter: 2014Q1

REPORT INFORMATION
  Report Type: Spontaneous
  Country: US (occurrence: None)
  Receive Date: 20140327
  Receipt Date: 20140327
  Transmission Date: 20141002
  Serious: Yes (Death)
  Sender: FDA-Public Use
  Company Number: 2014-US-003261

PATIENT
  Age: 54 Year
  Sex: Female

DRUGS (1)
  1. FAZACLO [Suspect]
     Route: 048
     Dates: start: 20080730

REACTIONS (1)
  - Death [None]
